FAERS Safety Report 4300298-4 (Version None)
Quarter: 2004Q1

REPORT INFORMATION
  Report Type: 
  Country: None (occurrence: None)
  Receive Date: 20040218
  Receipt Date: 20040203
  Transmission Date: 20041129
  Serious: Yes (Hospitalization)
  Sender: FDA-Public Use
  Company Number: 2002IM000550

PATIENT
  Age: 50 Year
  Sex: Male
  Weight: 103.8737 kg

DRUGS (31)
  1. ACTIMMUNE [Suspect]
     Indication: HEPATITIS C
     Dosage: 100 UG;TIW;SUBCUTANEOUS
     Route: 058
     Dates: start: 20020305
  2. LASIX [Concomitant]
  3. SPIRONOLACTONE [Concomitant]
  4. PRILOSEC [Concomitant]
  5. PROZAC [Concomitant]
  6. XANAX [Concomitant]
  7. PROPRANOLOL [Concomitant]
  8. LEVSIN [Concomitant]
  9. DEMEROL [Concomitant]
  10. MILK THISTLE [Concomitant]
  11. IBUPROFEN [Concomitant]
  12. ROBITUSSIN A-C [Concomitant]
  13. ZITHROMAX [Concomitant]
  14. VACTROPBAM OINMENT 2% [Concomitant]
  15. GLY-OXIDE MOUTHWASH [Concomitant]
  16. SEROQUEL [Concomitant]
  17. PROTONIX [Concomitant]
  18. METHADONE HCL [Concomitant]
  19. HUMULIN N [Concomitant]
  20. LACTULOSE [Concomitant]
  21. VITAMIN K TAB [Concomitant]
  22. ATIVAN [Concomitant]
  23. BENADRYL [Concomitant]
  24. CATAPRESS [Concomitant]
  25. POTASSIUM [Concomitant]
  26. LORAZEPAM [Concomitant]
  27. TRAZODONE HCL [Concomitant]
  28. PROPRANOLOL [Concomitant]
  29. LANTUS [Concomitant]
  30. SPIROLACTONE [Concomitant]
  31. HUMULIN N [Concomitant]

REACTIONS (6)
  - ASCITES [None]
  - COUGH [None]
  - DYSPNOEA [None]
  - FLUID OVERLOAD [None]
  - URINARY TRACT INFECTION [None]
  - WEIGHT DECREASED [None]
